FAERS Safety Report 10660769 (Version 6)
Quarter: 2015Q2

REPORT INFORMATION
  Report Type: Report from Study
  Country: US (occurrence: US)
  Receive Date: 20141217
  Receipt Date: 20150429
  Transmission Date: 20150821
  Serious: Yes (Hospitalization, Other)
  Sender: FDA-Public Use
  Company Number: US-AMGEN-USACT2014009822

PATIENT
  Age: 63 Year
  Sex: Female
  Weight: 64.2 kg

DRUGS (24)
  1. TYLENOL [Concomitant]
     Active Substance: ACETAMINOPHEN
     Dosage: 650 MG, UNK
     Route: 048
     Dates: start: 20140202
  2. MICAFUNGIN [Concomitant]
     Active Substance: MICAFUNGIN
     Dosage: 50 MG, UNK
     Route: 042
     Dates: start: 20140128, end: 20140228
  3. CEFEPIME [Concomitant]
     Active Substance: CEFEPIME\CEFEPIME HYDROCHLORIDE
     Dosage: 2000 ML, UNK
     Route: 042
     Dates: start: 20140206, end: 20140301
  4. BLINATUMOMAB [Suspect]
     Active Substance: BLINATUMOMAB
     Indication: ACUTE LYMPHOCYTIC LEUKAEMIA
     Dosage: 28 MUG, UNK
     Route: 041
     Dates: start: 20140130
  5. VICODIN [Concomitant]
     Active Substance: ACETAMINOPHEN\HYDROCODONE BITARTRATE
     Dosage: 1 UNK
     Route: 048
     Dates: start: 20140128
  6. KEPPRA [Concomitant]
     Active Substance: LEVETIRACETAM
     Dosage: 250 ML, UNK
     Route: 048
     Dates: start: 2013
  7. LEVAQUIN [Concomitant]
     Active Substance: LEVOFLOXACIN
     Dosage: 750 MG, UNK
     Route: 042
     Dates: start: 20140204, end: 20140205
  8. RISPERIDONE. [Concomitant]
     Active Substance: RISPERIDONE
     Dosage: 1.5 MG, UNK
     Route: 048
     Dates: start: 20140204, end: 20140208
  9. ALLOPURINOL. [Concomitant]
     Active Substance: ALLOPURINOL
     Dosage: 30 MG, UNK
     Route: 048
     Dates: start: 20140128, end: 20140321
  10. ACYCLOVIR                          /00587301/ [Concomitant]
     Active Substance: ACYCLOVIR
     Dosage: 100 MG, UNK
     Route: 048
     Dates: start: 20140130
  11. MIRALAX [Concomitant]
     Active Substance: POLYETHYLENE GLYCOL 3350
     Dosage: 1 UNK, UNK
     Route: 048
     Dates: start: 20140201, end: 20140228
  12. DILAUDID [Concomitant]
     Active Substance: HYDROMORPHONE HYDROCHLORIDE
     Dosage: 1 MG, UNK
     Route: 042
     Dates: start: 20140128
  13. ATIVAN [Concomitant]
     Active Substance: LORAZEPAM
     Dosage: 1 MG, UNK
     Route: 048
     Dates: start: 2010
  14. ATOVAQUONE. [Concomitant]
     Active Substance: ATOVAQUONE
     Dosage: 750 MG, UNK
     Route: 048
     Dates: start: 20140128
  15. DOCUSATE [Concomitant]
     Active Substance: DOCUSATE
     Dosage: 100 MG, UNK
     Route: 048
     Dates: start: 20140131
  16. NYSTATIN. [Concomitant]
     Active Substance: NYSTATIN
     Dosage: 5 ML, UNK
     Route: 050
     Dates: start: 20140128, end: 20140302
  17. PROTONIX [Concomitant]
     Active Substance: PANTOPRAZOLE SODIUM
     Dosage: 40 MG, UNK
     Route: 048
     Dates: start: 20140128, end: 20140302
  18. ZOFRAN                             /00955301/ [Concomitant]
     Active Substance: ONDANSETRON HYDROCHLORIDE
     Dosage: 8 MG, UNK
     Route: 042
     Dates: start: 20140131
  19. POTASSIUM CHLORIDE. [Concomitant]
     Active Substance: POTASSIUM CHLORIDE
     Dosage: UNK
     Route: 042
     Dates: start: 20140207
  20. BENADRYL [Concomitant]
     Active Substance: DIPHENHYDRAMINE HYDROCHLORIDE
     Dosage: 25 MG, UNK
     Route: 042
     Dates: start: 20140202
  21. SOTALOL. [Concomitant]
     Active Substance: SOTALOL
     Dosage: 40 MG, UNK
     Route: 048
     Dates: start: 2010
  22. BIOTENE                            /03475601/ [Concomitant]
     Dosage: 15 ML, UNK
     Route: 050
     Dates: start: 20140128, end: 20140302
  23. DEXAMETHASONE. [Concomitant]
     Active Substance: DEXAMETHASONE
     Dosage: 2 - 20 MG, UNK
     Route: 042
     Dates: start: 20140128, end: 20140209
  24. ZOLOFT [Concomitant]
     Active Substance: SERTRALINE HYDROCHLORIDE
     Dosage: 25 MG, UNK
     Route: 048
     Dates: start: 2010

REACTIONS (2)
  - Atrial fibrillation [Recovered/Resolved]
  - Atrial flutter [Recovered/Resolved]

NARRATIVE: CASE EVENT DATE: 20140208
